FAERS Safety Report 9607332 (Version 1)
Quarter: 2013Q4

REPORT INFORMATION
  Report Type: Spontaneous
  Country: US (occurrence: None)
  Receive Date: 20131007
  Receipt Date: 20131007
  Transmission Date: 20140711
  Serious: Yes (Disabling)
  Sender: FDA-Public Use
  Company Number: None

PATIENT
  Age: 49 Year
  Sex: Male
  Weight: 113 kg

DRUGS (1)
  1. LIPITOR [Suspect]
     Indication: LOW DENSITY LIPOPROTEIN INCREASED
     Dosage: 2 PILLS OR TWO 20 MG TABS, ONCE DAILY
     Route: 048

REACTIONS (10)
  - Myalgia [None]
  - Memory impairment [None]
  - Arthralgia [None]
  - Poor quality sleep [None]
  - Restlessness [None]
  - Flatulence [None]
  - Fatigue [None]
  - Lip dry [None]
  - Discomfort [None]
  - Lip pain [None]
